FAERS Safety Report 9140771 (Version 1)
Quarter: 2013Q1

REPORT INFORMATION
  Report Type: Spontaneous
  Country: US (occurrence: US)
  Receive Date: 20130305
  Receipt Date: 20130305
  Transmission Date: 20140127
  Serious: Yes (Other)
  Sender: FDA-Public Use
  Company Number: US-ENDO PHARMACEUTICALS INC.-OPIR20120089

PATIENT
  Sex: 0

DRUGS (2)
  1. OPANA [Suspect]
     Indication: DRUG ABUSE
     Dosage: N/A
  2. OPANA [Suspect]
     Indication: DRUG DIVERSION

REACTIONS (3)
  - Wrong technique in drug usage process [Unknown]
  - Drug abuse [Unknown]
  - Drug diversion [Unknown]
